FAERS Safety Report 9626257 (Version 3)
Quarter: 2013Q4

REPORT INFORMATION
  Report Type: Spontaneous
  Country: GB (occurrence: GB)
  Receive Date: 20131016
  Receipt Date: 20131029
  Transmission Date: 20140711
  Serious: Yes (Congenital Anomaly)
  Sender: FDA-Public Use
  Company Number: GB-PFIZER INC-2012311421

PATIENT
  Sex: Male

DRUGS (1)
  1. RAMIPRIL [Suspect]
     Indication: HYPERTENSION
     Dosage: 5 MG, DAILY
     Route: 064
     Dates: end: 20120829

REACTIONS (5)
  - Maternal exposure timing unspecified [Not Recovered/Not Resolved]
  - Placental infarction [Not Recovered/Not Resolved]
  - Small for dates baby [Not Recovered/Not Resolved]
  - Cell death [Not Recovered/Not Resolved]
  - Amniotic cavity infection [Not Recovered/Not Resolved]
